FAERS Safety Report 24603119 (Version 1)
Quarter: 2024Q4

REPORT INFORMATION
  Report Type: Other
  Country: US (occurrence: US)
  Receive Date: 20241111
  Receipt Date: 20241111
  Transmission Date: 20250114
  Serious: No
  Sender: TRAVERE THERAPEUTICS
  Company Number: US-TRAVERE-2024TVT01084

PATIENT
  Age: 60 Year
  Sex: Male

DRUGS (2)
  1. FILSPARI [Suspect]
     Active Substance: SPARSENTAN
     Indication: Product used for unknown indication
     Route: 048
  2. FILSPARI [Suspect]
     Active Substance: SPARSENTAN
     Dosage: THE PHYSICIAN LOWERED THE PATIENT^S SPARSENTAN DOSE TO 200MG
     Route: 048

REACTIONS (3)
  - Palpitations [Recovered/Resolved]
  - Oedema [Recovered/Resolved]
  - Blood pressure fluctuation [Recovered/Resolved]
